FAERS Safety Report 4810586-0 (Version None)
Quarter: 2005Q4

REPORT INFORMATION
  Report Type: 
  Country: None (occurrence: None)
  Receive Date: 20051025
  Receipt Date: 20051025
  Transmission Date: 20060501
  Serious: Yes (Other)
  Sender: FDA-Public Use
  Company Number: None

PATIENT
  Sex: Female
  Weight: 54.4316 kg

DRUGS (2)
  1. SYNTHROID [Suspect]
     Indication: HYPOTHYROIDISM
     Dosage: ONE TAB IN THE MORNING
     Dates: start: 20050820, end: 20050821
  2. ORTHO TRI-CYCLE TAB [Concomitant]

REACTIONS (2)
  - HEADACHE [None]
  - PAIN [None]
